FAERS Safety Report 16961676 (Version 1)
Quarter: 2019Q4

REPORT INFORMATION
  Report Type: Spontaneous
  Country: RO (occurrence: RO)
  Receive Date: 20191025
  Receipt Date: 20191025
  Transmission Date: 20200122
  Serious: Yes (Hospitalization, Other)
  Sender: FDA-Public Use
  Company Number: RO-STRIDES ARCOLAB LIMITED-2019SP010430

PATIENT
  Age: 68 Year
  Sex: Male

DRUGS (2)
  1. CARBAMAZEPINE. [Concomitant]
     Active Substance: CARBAMAZEPINE
     Indication: MIGRAINE
     Dosage: 600 MILLIGRAM DAILY
     Route: 065
  2. IBUPROFEN. [Suspect]
     Active Substance: IBUPROFEN
     Indication: MIGRAINE
     Dosage: OVER 2 GM DAILY
     Route: 048

REACTIONS (8)
  - Productive cough [Unknown]
  - Drug abuse [Unknown]
  - Dysphagia [Recovered/Resolved]
  - Cachexia [Unknown]
  - Tracheo-oesophageal fistula [Not Recovered/Not Resolved]
  - Dysphonia [Unknown]
  - Pallor [Unknown]
  - Rales [Unknown]
